FAERS Safety Report 7043619-4 (Version None)
Quarter: 2010Q4

REPORT INFORMATION
  Report Type: 
  Country: None (occurrence: None)
  Receive Date: 20101013
  Receipt Date: 20101004
  Transmission Date: 20110411
  Serious: Yes (Other)
  Sender: FDA-Public Use
  Company Number: B0677548A

PATIENT
  Age: 34 Year
  Sex: Male
  Weight: 82 kg

DRUGS (4)
  1. ARIXTRA [Suspect]
     Indication: THROMBOSIS PROPHYLAXIS
     Dosage: 2.5MG PER DAY
     Route: 058
     Dates: start: 20100623, end: 20100630
  2. EFFERALGAN [Suspect]
     Indication: PAIN
     Dosage: 1G THREE TIMES PER DAY
     Route: 048
     Dates: start: 20100624, end: 20100630
  3. TETRAZEPAM [Concomitant]
     Dosage: 50MG THREE TIMES PER DAY
     Route: 048
     Dates: start: 20100624, end: 20100630
  4. TRIMEPRAZINE TAB [Concomitant]
     Indication: SLEEP DISORDER
     Dosage: 10DROP PER DAY
     Route: 048
     Dates: start: 20100628, end: 20100630

REACTIONS (2)
  - ASTHENIA [None]
  - TRANSAMINASES INCREASED [None]
